FAERS Safety Report 7893350-8 (Version None)
Quarter: 2011Q4

REPORT INFORMATION
  Report Type: 
  Country: None (occurrence: None)
  Receive Date: 20111104
  Receipt Date: 20111026
  Transmission Date: 20120403
  Serious: Yes (Hospitalization)
  Sender: FDA-Public Use
  Company Number: IT-PFIZER INC-2011268271

PATIENT
  Sex: Male
  Weight: 114 kg

DRUGS (9)
  1. AMPICILLIN SODIUM/SULBACTAM SODIUM [Concomitant]
     Dosage: UNK
     Dates: start: 20110619, end: 20110625
  2. KANRENOL [Concomitant]
     Dosage: UNK
     Dates: start: 20090701
  3. DEURSIL [Concomitant]
     Dosage: UNK
     Dates: start: 20060101
  4. SILDENAFIL CITRATE [Suspect]
     Indication: PULMONARY HYPERTENSION
     Dosage: 60 MG, UNK
     Route: 048
     Dates: start: 20090201
  5. BLINDED THERAPY [Suspect]
     Dosage: UNK
     Route: 065
     Dates: start: 20110616, end: 20110912
  6. FUROSEMIDE [Concomitant]
     Dosage: UNK
     Dates: start: 20110619, end: 20110623
  7. LASIX [Concomitant]
     Dosage: UNK
     Dates: start: 20110624
  8. RIOCIGUAT [Suspect]
     Dosage: UNK
     Dates: start: 20110913
  9. AUGMENTIN [Concomitant]
     Dosage: UNK
     Dates: start: 20110712, end: 20110802

REACTIONS (1)
  - ERYSIPELAS [None]
